FAERS Safety Report 22161233 (Version 1)
Quarter: 2023Q1

REPORT INFORMATION
  Report Type: Spontaneous
  Country: FR (occurrence: FR)
  Receive Date: 20230331
  Receipt Date: 20230331
  Transmission Date: 20230418
  Serious: Yes (Hospitalization)
  Sender: FDA-Public Use
  Company Number: None

PATIENT
  Age: 36 Year
  Sex: Male

DRUGS (5)
  1. BUPRENORPHINE [Suspect]
     Active Substance: BUPRENORPHINE
  2. MORPHINE SULFATE [Suspect]
     Active Substance: MORPHINE SULFATE
  3. TRAMADOL HYDROCHLORIDE [Suspect]
     Active Substance: TRAMADOL HYDROCHLORIDE
  4. COCAINE [Suspect]
     Active Substance: COCAINE
  5. CANNABIS SATIVA SUBSP. INDICA TOP [Suspect]
     Active Substance: CANNABIS SATIVA SUBSP. INDICA TOP

REACTIONS (9)
  - Drug abuse [Unknown]
  - Oxygen saturation decreased [Unknown]
  - Photophobia [Recovered/Resolved]
  - Hypertonia [Recovered/Resolved]
  - Abnormal behaviour [Recovered/Resolved]
  - Headache [Recovering/Resolving]
  - Paraesthesia [Unknown]
  - Miosis [Recovered/Resolved]
  - Agitation [Recovered/Resolved]
